FAERS Safety Report 5813570-3 (Version None)
Quarter: 2008Q3

REPORT INFORMATION
  Report Type: 
  Country: None (occurrence: None)
  Receive Date: 20080717
  Receipt Date: 20080715
  Transmission Date: 20090109
  Serious: Yes (Other)
  Sender: FDA-Public Use
  Company Number: GB-WYE-H02307408

PATIENT
  Age: 72 Year
  Sex: Male

DRUGS (14)
  1. TIGECYCLINE [Suspect]
     Indication: STAPHYLOCOCCAL INFECTION
     Dosage: UNKNOWN
     Route: 065
  2. TIGECYCLINE [Suspect]
     Indication: BACTERAEMIA
  3. LEVOFLOXACIN [Suspect]
     Indication: BACTERAEMIA
  4. LEVOFLOXACIN [Suspect]
     Indication: STAPHYLOCOCCAL INFECTION
  5. RIFAMPICIN [Suspect]
     Indication: BACTERAEMIA
  6. RIFAMPICIN [Suspect]
     Indication: STAPHYLOCOCCAL INFECTION
  7. CIPROFLOXACIN [Suspect]
     Indication: BACTERAEMIA
  8. CIPROFLOXACIN [Suspect]
     Indication: STAPHYLOCOCCAL INFECTION
  9. MINOCYCLINE HCL [Suspect]
     Indication: BACTERAEMIA
  10. MINOCYCLINE HCL [Suspect]
     Indication: STAPHYLOCOCCAL INFECTION
  11. AZITHROMYCIN [Suspect]
     Indication: BACTERAEMIA
  12. AZITHROMYCIN [Suspect]
     Indication: STAPHYLOCOCCAL INFECTION
  13. VANCOMYCIN HCL [Suspect]
     Indication: BACTERAEMIA
  14. VANCOMYCIN HCL [Suspect]
     Indication: STAPHYLOCOCCAL INFECTION

REACTIONS (1)
  - CLOSTRIDIAL INFECTION [None]
